FAERS Safety Report 10459813 (Version 4)
Quarter: 2015Q2

REPORT INFORMATION
  Report Type: Spontaneous
  Country: US (occurrence: None)
  Receive Date: 20140915
  Receipt Date: 20150612
  Transmission Date: 20150821
  Serious: Yes (Hospitalization)
  Sender: FDA-Public Use
  Company Number: US-001240

PATIENT
  Age: 59 Year
  Sex: Female
  Weight: 62.14 kg

DRUGS (9)
  1. VITAMIN D3 [Concomitant]
     Active Substance: CHOLECALCIFEROL
  2. POTASSIUM [Concomitant]
     Active Substance: POTASSIUM
  3. OPIUM [Concomitant]
     Active Substance: OPIUM
  4. QUESTRAN [Concomitant]
     Active Substance: CHOLESTYRAMINE
  5. ZOFRAN [Concomitant]
     Active Substance: ONDANSETRON HYDROCHLORIDE
  6. SOLUTIONS FOR PARENTERAL NUTRITION [Concomitant]
     Active Substance: AMINO ACIDS\DEXTROSE\ELECTROLYTES NOS
  7. GATTEX [Suspect]
     Active Substance: TEDUGLUTIDE\WATER
     Indication: SHORT-BOWEL SYNDROME
     Dosage: BATCH NO. 143608
     Route: 058
     Dates: start: 20131024
  8. MIRTAZAPINE. [Concomitant]
     Active Substance: MIRTAZAPINE
  9. TYLENOL WITH CODEINE [Concomitant]
     Active Substance: ACETAMINOPHEN\CODEINE PHOSPHATE

REACTIONS (7)
  - Decreased appetite [None]
  - Drug dose omission [None]
  - Weight decreased [None]
  - Cholecystectomy [None]
  - Dehydration [None]
  - Malaise [None]
  - Pancreatitis [None]

NARRATIVE: CASE EVENT DATE: 201407
